FAERS Safety Report 4534515-2 (Version None)
Quarter: 2004Q4

REPORT INFORMATION
  Report Type: 
  Country: None (occurrence: None)
  Receive Date: 20041214
  Receipt Date: 20041022
  Transmission Date: 20050328
  Serious: No
  Sender: FDA-Public Use
  Company Number: 2004241347US

PATIENT
  Age: 49 Year
  Sex: Female
  Weight: 68.9 kg

DRUGS (6)
  1. BEXTRA [Suspect]
     Indication: BACK PAIN
     Dosage: 20 MG, BID, ORAL
     Route: 048
     Dates: start: 20030401, end: 20041016
  2. ^VERELIN PM^ [Concomitant]
  3. NEXIUM [Concomitant]
  4. AMITRIPTYLINE [Concomitant]
  5. NEURONTIN [Concomitant]
  6. ^TIZANIDINE^ [Concomitant]

REACTIONS (2)
  - OSTEOPOROSIS [None]
  - SURGERY [None]
